FAERS Safety Report 11867478 (Version 1)
Quarter: 2015Q4

REPORT INFORMATION
  Report Type: Spontaneous
  Country: US (occurrence: None)
  Receive Date: 20151223
  Receipt Date: 20151223
  Transmission Date: 20160305
  Serious: No
  Sender: FDA-Public Use
  Company Number: None

PATIENT
  Age: 38 Year
  Sex: Female

DRUGS (1)
  1. ENBREL [Suspect]
     Active Substance: ETANERCEPT
     Indication: PSORIASIS
     Dosage: UNDER THE SKIN
     Dates: end: 201512

REACTIONS (2)
  - Throat tightness [None]
  - Injection site reaction [None]

NARRATIVE: CASE EVENT DATE: 201512
